FAERS Safety Report 17833603 (Version 1)
Quarter: 2020Q2

REPORT INFORMATION
  Report Type: Spontaneous
  Country: US (occurrence: US)
  Receive Date: 20200527
  Receipt Date: 20200527
  Transmission Date: 20200714
  Serious: Yes (Life-Threatening, Hospitalization)
  Sender: FDA-Public Use
  Company Number: None

PATIENT
  Age: 48 Year
  Sex: Female
  Weight: 83 kg

DRUGS (11)
  1. FUROSEMIDE 20MG [Concomitant]
     Active Substance: FUROSEMIDE
  2. LORAZEPAM 2MG [Concomitant]
     Active Substance: LORAZEPAM
  3. VANCOMYCIN [Concomitant]
     Active Substance: VANCOMYCIN
  4. ATORVASTATIN 10MG [Concomitant]
     Active Substance: ATORVASTATIN
  5. REMDESIVIR. [Suspect]
     Active Substance: REMDESIVIR
     Indication: COVID-19 PNEUMONIA
     Dates: start: 20200505, end: 20200524
  6. FAMOTIDINE 20MG [Concomitant]
     Active Substance: FAMOTIDINE
  7. HEPARIN [Concomitant]
     Active Substance: HEPARIN SODIUM
  8. INSULIN ASPART [Concomitant]
     Active Substance: INSULIN ASPART
  9. INSULIN DETEMIR [Concomitant]
     Active Substance: INSULIN DETEMIR
  10. SODIUM CHLORIDE. [Concomitant]
     Active Substance: SODIUM CHLORIDE
  11. ASPIRIN 81MG [Concomitant]
     Active Substance: ASPIRIN

REACTIONS (2)
  - Bacterial infection [None]
  - White blood cell count increased [None]

NARRATIVE: CASE EVENT DATE: 20200521
